FAERS Safety Report 20726272 (Version 2)
Quarter: 2022Q2

REPORT INFORMATION
  Report Type: Spontaneous
  Country: CN (occurrence: CN)
  Receive Date: 20220419
  Receipt Date: 20220425
  Transmission Date: 20220721
  Serious: Yes (Life-Threatening, Other)
  Sender: FDA-Public Use
  Company Number: CN-PFIZER INC-202200535845

PATIENT
  Age: 56 Year
  Sex: Female

DRUGS (8)
  1. PACLITAXEL [Suspect]
     Active Substance: PACLITAXEL
     Indication: Gastric cancer
     Dosage: 50 MG/M2, CYCLIC (ON DAYS 1 AND 8)
     Route: 041
     Dates: start: 20210329, end: 20210615
  2. PACLITAXEL [Suspect]
     Active Substance: PACLITAXEL
     Dosage: 20 MG/M2, CYCLIC (ON DAYS 1 AND 8, Q4WKS)
     Route: 033
     Dates: start: 20210329, end: 20210615
  3. TS-1 [Suspect]
     Active Substance: GIMERACIL\OTERACIL\TEGAFUR
     Indication: Gastric cancer
     Dosage: 40 MG, CYCLIC (FOR 14 DAYS, Q3WKS)
     Route: 048
     Dates: start: 20210329, end: 20210615
  4. CAMRELIZUMAB [Concomitant]
     Active Substance: CAMRELIZUMAB
     Indication: Gastric cancer
     Dosage: 200 MG, CYCLIC (Q3WKS)
     Route: 041
     Dates: start: 20210315, end: 20210615
  5. CAMRELIZUMAB [Concomitant]
     Active Substance: CAMRELIZUMAB
     Dosage: 200 MG, Q 2 WKS
     Route: 041
     Dates: start: 20210625
  6. OXALIPLATIN [Concomitant]
     Active Substance: OXALIPLATIN
     Indication: Gastric cancer
     Dosage: 100 MG
     Route: 013
     Dates: start: 20210318, end: 20210318
  7. APATINIB [Concomitant]
     Active Substance: APATINIB
     Indication: Gastric cancer
     Dosage: 0.5 G, CYCLIC (QD, FOR 14 DAYS Q3WKS)
     Route: 048
     Dates: start: 20210321, end: 20210615
  8. APATINIB [Concomitant]
     Active Substance: APATINIB
     Dosage: 0.5 G, QD, FOR 14 DAYS, Q3WKS
     Route: 048
     Dates: start: 20210624

REACTIONS (6)
  - Myelosuppression [Recovering/Resolving]
  - Gastrointestinal haemorrhage [Recovered/Resolved]
  - Bacterial infection [Recovered/Resolved]
  - Fungal infection [Recovered/Resolved]
  - Mouth ulceration [Recovering/Resolving]
  - Rash [Recovering/Resolving]

NARRATIVE: CASE EVENT DATE: 20210606
